FAERS Safety Report 7372451-7 (Version None)
Quarter: 2011Q1

REPORT INFORMATION
  Report Type: 
  Country: None (occurrence: None)
  Receive Date: 20110324
  Receipt Date: 20110318
  Transmission Date: 20110831
  Serious: Yes (Other)
  Sender: FDA-Public Use
  Company Number: PHHY2010CA61865

PATIENT
  Sex: Female
  Weight: 58.05 kg

DRUGS (2)
  1. EXTAVIA [Suspect]
     Indication: RELAPSING-REMITTING MULTIPLE SCLEROSIS
     Dosage: 8 MIU, QOD
     Route: 058
     Dates: start: 20100830
  2. DESOGESTREL AND ETHINYL ESTRADIOL [Concomitant]
     Dosage: UNK UKN, UNK

REACTIONS (15)
  - INFLUENZA LIKE ILLNESS [None]
  - INJECTION SITE HAEMATOMA [None]
  - HEADACHE [None]
  - LIVER DISORDER [None]
  - FATIGUE [None]
  - INJECTION SITE JOINT REDNESS [None]
  - NAUSEA [None]
  - VOMITING [None]
  - PAIN IN EXTREMITY [None]
  - INJECTION SITE PAIN [None]
  - MYALGIA [None]
  - DIARRHOEA [None]
  - MUSCULOSKELETAL STIFFNESS [None]
  - INJECTION SITE DISCOLOURATION [None]
  - INJECTION SITE PRURITUS [None]
